FAERS Safety Report 16279083 (Version 4)
Quarter: 2019Q2

REPORT INFORMATION
  Report Type: Spontaneous
  Country: US (occurrence: US)
  Receive Date: 20190506
  Receipt Date: 20190626
  Transmission Date: 20190711
  Serious: Yes (Hospitalization)
  Sender: FDA-Public Use
  Company Number: US-SA-2019SA119629

PATIENT
  Age: 74 Year
  Sex: Female

DRUGS (10)
  1. TAGAMET [Concomitant]
     Active Substance: CIMETIDINE
  2. PROBIOTIC [BIFIDOBACTERIUM LACTIS] [Concomitant]
     Active Substance: BIFIDOBACTERIUM ANIMALIS LACTIS
  3. PERCOCET [OXYCODONE HYDROCHLORIDE;OXYCODONE TEREPHTHALATE;PARACETAMOL] [Concomitant]
     Active Substance: ACETAMINOPHEN\OXYCODONE HYDROCHLORIDE\OXYCODONE TEREPHTHALATE
  4. ACETAMINOPHEN. [Concomitant]
     Active Substance: ACETAMINOPHEN
  5. ALIROCUMAB [Suspect]
     Active Substance: ALIROCUMAB
  6. METOPROLOL SUCCINATE;METOPROLOL TARTRATE [Concomitant]
  7. DULCOLAX (BISACODYL) [Concomitant]
     Active Substance: BISACODYL
  8. TRAZODONE [Concomitant]
     Active Substance: TRAZODONE HYDROCHLORIDE
  9. MAGNESIUM [Concomitant]
     Active Substance: MAGNESIUM
  10. XARELTO [Concomitant]
     Active Substance: RIVAROXABAN

REACTIONS (6)
  - Vertigo [Unknown]
  - Dizziness postural [Unknown]
  - Dehydration [Unknown]
  - Syncope [Recovered/Resolved]
  - Haematoma [Unknown]
  - Tendon rupture [Recovered/Resolved]

NARRATIVE: CASE EVENT DATE: 201903
